FAERS Safety Report 6748076-0 (Version None)
Quarter: 2010Q2

REPORT INFORMATION
  Report Type: 
  Country: None (occurrence: None)
  Receive Date: 20100531
  Receipt Date: 20100517
  Transmission Date: 20101027
  Serious: Yes (Other)
  Sender: FDA-Public Use
  Company Number: US-ASTRAZENECA-2007UW08755

PATIENT
  Sex: Female

DRUGS (5)
  1. SEROQUEL [Suspect]
     Route: 048
  2. LORAZEPAM [Concomitant]
     Dates: start: 20020304
  3. RISPERDAL [Concomitant]
     Dates: start: 20020304
  4. COUMADIN [Concomitant]
     Dates: start: 20020304
  5. SOTALOL HCL [Concomitant]
     Indication: ARRHYTHMIA SUPRAVENTRICULAR
     Dates: start: 20020304

REACTIONS (2)
  - DIABETES MELLITUS [None]
  - NEUROPATHY PERIPHERAL [None]
